FAERS Safety Report 11869421 (Version 1)
Quarter: 2015Q4

REPORT INFORMATION
  Report Type: Spontaneous
  Country: CA (occurrence: CA)
  Receive Date: 20151227
  Receipt Date: 20151227
  Transmission Date: 20160305
  Serious: Yes (Other)
  Sender: FDA-Public Use
  Company Number: CA-TEVA-621353ACC

PATIENT
  Age: 61 Year
  Sex: Male
  Weight: 118.95 kg

DRUGS (8)
  1. MULTIVITAMINE(S) [Concomitant]
  2. VITAMIN C [Concomitant]
     Active Substance: ASCORBIC ACID
  3. VITAMIN D [Concomitant]
     Active Substance: CHOLECALCIFEROL
  4. ELOXATIN [Suspect]
     Active Substance: OXALIPLATIN
     Indication: COLON CANCER
  5. OMEGA - 3 [Concomitant]
  6. LEUCOVORIN CALCIUM INJECTION IM IV 10MG/ML [Suspect]
     Active Substance: LEUCOVORIN CALCIUM
     Indication: COLON CANCER
  7. LEUCOVORIN CALCIUM INJECTION IM IV 10MG/ML [Suspect]
     Active Substance: LEUCOVORIN CALCIUM
     Indication: RECTAL CANCER
     Route: 042
  8. ELOXATIN [Suspect]
     Active Substance: OXALIPLATIN
     Indication: RECTAL CANCER
     Route: 042

REACTIONS (1)
  - Rash maculo-papular [Recovered/Resolved]
